FAERS Safety Report 7359566-4 (Version None)
Quarter: 2011Q1

REPORT INFORMATION
  Report Type: 
  Country: None (occurrence: None)
  Receive Date: 20110317
  Receipt Date: 20100201
  Transmission Date: 20110831
  Serious: No
  Sender: FDA-Public Use
  Company Number: US-PFIZER INC-2010014057

PATIENT
  Sex: Male
  Weight: 88.45 kg

DRUGS (13)
  1. VALSARTAN [Concomitant]
     Dosage: 160 MG, UNK
  2. IBUPROFEN [Concomitant]
     Indication: ARTHRITIS
     Dosage: 600 MG, 3X/DAY
  3. SIMVASTATIN [Concomitant]
     Dosage: 40 MG, UNK
  4. LANSOPRAZOLE [Concomitant]
     Indication: GASTROOESOPHAGEAL REFLUX DISEASE
     Dosage: UNK
  5. MONTELUKAST SODIUM [Concomitant]
     Dosage: 10 MG, UNK
  6. TAMSULOSIN HYDROCHLORIDE [Concomitant]
     Dosage: 0.4 MG, UNK
  7. BENADRYL [Concomitant]
     Dosage: UNK
     Route: 048
  8. ACETYLSALICYLIC ACID [Concomitant]
     Indication: HYPERTENSION
  9. AMLODIPINE BESYLATE [Suspect]
     Indication: HYPERTENSION
     Dosage: 5 MG, 1X/DAY
     Dates: start: 20090101
  10. TRAMADOL [Concomitant]
     Indication: ARTHRITIS
     Dosage: 50 MG, AS NEEDED
  11. FINASTERIDE [Concomitant]
     Dosage: 5 MG, 1X/DAY
  12. FEXOFENADINE [Concomitant]
     Dosage: 15 MG, 2X/DAY
  13. ACETYLSALICYLIC ACID [Concomitant]
     Indication: CARDIAC DISORDER
     Dosage: 325 MG, 1X/DAY

REACTIONS (1)
  - URTICARIA [None]
